FAERS Safety Report 10665692 (Version 2)
Quarter: 2015Q1

REPORT INFORMATION
  Report Type: Spontaneous
  Country: US (occurrence: US)
  Receive Date: 20141219
  Receipt Date: 20150319
  Transmission Date: 20150720
  Serious: No
  Sender: FDA-Public Use
  Company Number: US-SHIONOGI, INC-2014001036

PATIENT

DRUGS (2)
  1. PREMARIN [Concomitant]
     Active Substance: ESTROGENS, CONJUGATED
     Indication: ATROPHY
     Dosage: 1 G, TWICE A WEEK
     Route: 065
     Dates: start: 2012
  2. OSPHENA [Suspect]
     Active Substance: OSPEMIFENE
     Indication: DYSPAREUNIA
     Dosage: 60 MG, QD
     Route: 065
     Dates: start: 20140624, end: 20140822

REACTIONS (3)
  - Bilirubin conjugated increased [Unknown]
  - Labelled drug-drug interaction medication error [Unknown]
  - Blood bilirubin increased [Unknown]
